FAERS Safety Report 9162140 (Version 2)
Quarter: 2013Q2

REPORT INFORMATION
  Report Type: Spontaneous
  Country: AU (occurrence: AU)
  Receive Date: 20130314
  Receipt Date: 20130410
  Transmission Date: 20140414
  Serious: Yes (Hospitalization)
  Sender: FDA-Public Use
  Company Number: AU-GENZYME-CAMP-1002786

PATIENT
  Age: 83 Year
  Sex: Male

DRUGS (5)
  1. MABCAMPATH [Suspect]
     Indication: PROLYMPHOCYTIC LEUKAEMIA
     Dosage: 3 MG, UNK
     Route: 058
     Dates: start: 20130228, end: 20130228
  2. MABCAMPATH [Suspect]
     Dosage: 10 MG, UNK
     Route: 058
     Dates: start: 20130301, end: 20130301
  3. PARACETAMOL [Concomitant]
     Indication: PREMEDICATION
     Dosage: 1 G, QID
     Route: 065
     Dates: start: 20130216
  4. VANCOMYCIN [Concomitant]
     Indication: CELLULITIS
     Dosage: 1 G, BID
     Route: 065
     Dates: start: 20130227, end: 20130305
  5. HYDROCORTISONE [Concomitant]
     Indication: PREMEDICATION
     Dosage: UNK
     Route: 065

REACTIONS (3)
  - Atrial flutter [Recovered/Resolved]
  - Sinus tachycardia [Recovered/Resolved]
  - Hypotension [Recovered/Resolved]
